FAERS Safety Report 7485468-9 (Version None)
Quarter: 2011Q2

REPORT INFORMATION
  Report Type: 
  Country: None (occurrence: None)
  Receive Date: 20110516
  Receipt Date: 20110516
  Transmission Date: 20111010
  Serious: Yes (Other)
  Sender: FDA-Public Use
  Company Number: None

PATIENT
  Age: 66 Year
  Sex: Male
  Weight: 67.1324 kg

DRUGS (4)
  1. OXYCODONE HCL [Suspect]
     Indication: PAIN
     Dates: start: 20110501, end: 20110531
  2. OXYCODONE HCL [Suspect]
     Indication: NEUROPATHY PERIPHERAL
     Dates: start: 20110501, end: 20110531
  3. OXYCODONE HCL [Suspect]
     Indication: PERONEAL MUSCULAR ATROPHY
     Dates: start: 20110501, end: 20110531
  4. DIAZAPAM [Concomitant]

REACTIONS (3)
  - PRODUCT FORMULATION ISSUE [None]
  - THERAPEUTIC RESPONSE DECREASED [None]
  - PRODUCT SUBSTITUTION ISSUE [None]
